FAERS Safety Report 5898731-X (Version None)
Quarter: 2008Q3

REPORT INFORMATION
  Report Type: 
  Country: None (occurrence: None)
  Receive Date: 20080925
  Receipt Date: 20080512
  Transmission Date: 20090109
  Serious: No
  Sender: FDA-Public Use
  Company Number: A0727461A

PATIENT
  Age: 50 Year
  Sex: Female

DRUGS (3)
  1. BUPROPION HYDROCHLORIDE [Suspect]
     Dosage: 150MG PER DAY
     Route: 048
     Dates: start: 20071201
  2. LAMICTAL [Suspect]
     Indication: BIPOLAR DISORDER
     Dosage: 150MG PER DAY
     Route: 048
     Dates: start: 20071201
  3. TOPAMAX [Concomitant]

REACTIONS (2)
  - BLOOD VISCOSITY INCREASED [None]
  - CONTUSION [None]
